FAERS Safety Report 6708926-0 (Version None)
Quarter: 2010Q2

REPORT INFORMATION
  Report Type: 
  Country: None (occurrence: None)
  Receive Date: 20100503
  Receipt Date: 20100503
  Transmission Date: 20101027
  Serious: Yes (Other)
  Sender: FDA-Public Use
  Company Number: None

PATIENT
  Sex: Female

DRUGS (2)
  1. TOPIRAMATE [Suspect]
     Indication: CONVULSION
     Dosage: 200 MG BID
  2. TOPIRAMATE [Suspect]
     Indication: HEADACHE
     Dosage: 200 MG BID

REACTIONS (4)
  - CONVULSION [None]
  - MIGRAINE [None]
  - NAUSEA [None]
  - VOMITING [None]
